FAERS Safety Report 6398247-0 (Version None)
Quarter: 2009Q4

REPORT INFORMATION
  Report Type: 
  Country: None (occurrence: None)
  Receive Date: 20091013
  Receipt Date: 20091008
  Transmission Date: 20100525
  Serious: Yes (Hospitalization)
  Sender: FDA-Public Use
  Company Number: PHHO2006US13976

PATIENT
  Sex: Female
  Weight: 101 kg

DRUGS (9)
  1. NEORAL [Suspect]
     Indication: RENAL TRANSPLANT
     Dosage: 225 MG/DAY
     Route: 048
     Dates: start: 20060603
  2. NEORAL [Suspect]
     Dosage: 125 MG/DAY
     Route: 048
  3. NEORAL [Suspect]
     Dosage: 100 MG, BID
     Route: 048
  4. NEORAL [Suspect]
     Dosage: 225MG/DAY
  5. ERL 080A ERL+TAB [Suspect]
     Indication: RENAL TRANSPLANT
     Dosage: 720 MG, BID
     Route: 048
     Dates: start: 20060603
  6. COLCHICINE [Suspect]
  7. LISINOPRIL [Concomitant]
  8. HYDROCHLOROTHIAZIDE [Concomitant]
  9. PREDNISONE [Concomitant]
     Indication: RENAL TRANSPLANT
     Dosage: 5MG/DAY
     Route: 048
     Dates: start: 20070305

REACTIONS (7)
  - BLOOD CREATININE INCREASED [None]
  - DEHYDRATION [None]
  - DIARRHOEA [None]
  - DRUG LEVEL ABOVE THERAPEUTIC [None]
  - HYPOVOLAEMIA [None]
  - NEPHROPATHY TOXIC [None]
  - RENAL FAILURE ACUTE [None]
